FAERS Safety Report 14535699 (Version 1)
Quarter: 2018Q1

REPORT INFORMATION
  Report Type: Spontaneous
  Country: US (occurrence: US)
  Receive Date: 20180214
  Receipt Date: 20180214
  Transmission Date: 20180509
  Serious: Yes (Other)
  Sender: FDA-Public Use
  Company Number: None

PATIENT
  Age: 25 Year
  Sex: Female
  Weight: 65.25 kg

DRUGS (3)
  1. TEA TREE OIL. [Concomitant]
     Active Substance: TEA TREE OIL
  2. TAMIFLU [Suspect]
     Active Substance: OSELTAMIVIR PHOSPHATE
  3. BENADRYL [Concomitant]
     Active Substance: DIPHENHYDRAMINE HYDROCHLORIDE

REACTIONS (16)
  - Dizziness [None]
  - Throat irritation [None]
  - Swelling [None]
  - Feeling abnormal [None]
  - Swelling face [None]
  - Scar [None]
  - Tongue disorder [None]
  - Ear pruritus [None]
  - Impaired work ability [None]
  - Urticaria [None]
  - Pruritus [None]
  - Rash [None]
  - Dyspnoea [None]
  - Nausea [None]
  - Abdominal pain upper [None]
  - Diarrhoea [None]

NARRATIVE: CASE EVENT DATE: 20180202
